FAERS Safety Report 18008292 (Version 3)
Quarter: 2020Q3

REPORT INFORMATION
  Report Type: Report from Study
  Country: None (occurrence: KR)
  Receive Date: 20200710
  Receipt Date: 20200717
  Transmission Date: 20201103
  Serious: Yes (Hospitalization)
  Sender: FDA-Public Use
  Company Number: KR-ABBVIE-20K-090-3476179-00

PATIENT
  Age: 45 Year
  Sex: Female
  Weight: 57 kg

DRUGS (11)
  1. STOGAD [Concomitant]
     Indication: END STAGE RENAL DISEASE
     Route: 048
  2. NEUROMIN [Concomitant]
     Indication: END STAGE RENAL DISEASE
     Route: 048
  3. DULCOLAX?S [Concomitant]
     Indication: CONSTIPATION
     Dosage: DAILY DOSE: 4 PACK
     Route: 048
  4. DULCOLAX?S [Concomitant]
     Indication: CONSTIPATION
     Route: 048
  5. LASIX [Concomitant]
     Active Substance: FUROSEMIDE
     Indication: END STAGE RENAL DISEASE
     Route: 048
  6. SYNTHYROXINE [Concomitant]
     Active Substance: LEVOTHYROXINE SODIUM
     Indication: HYPOTHYROIDISM
     Route: 048
     Dates: start: 20190816
  7. MAVIRET [Suspect]
     Active Substance: GLECAPREVIR\PIBRENTASVIR
     Indication: CHRONIC HEPATITIS C
     Route: 048
     Dates: start: 20200116, end: 20200311
  8. ZYRORIC [Concomitant]
     Active Substance: ALLOPURINOL
     Indication: END STAGE RENAL DISEASE
     Route: 048
  9. POSPOND [Concomitant]
     Indication: END STAGE RENAL DISEASE
     Route: 048
  10. DUPHALAC EASY [Concomitant]
     Active Substance: LACTULOSE
     Indication: PRODUCT USED FOR UNKNOWN INDICATION
  11. ADIPAM [Concomitant]
     Indication: END STAGE RENAL DISEASE
     Route: 048

REACTIONS (1)
  - Arteriovenous fistula site complication [Recovered/Resolved]

NARRATIVE: CASE EVENT DATE: 20200406
